FAERS Safety Report 17069325 (Version 1)
Quarter: 2019Q4

REPORT INFORMATION
  Report Type: Spontaneous
  Country: US (occurrence: US)
  Receive Date: 20191125
  Receipt Date: 20191125
  Transmission Date: 20200122
  Serious: No
  Sender: FDA-Public Use
  Company Number: US-JNJFOC-20191134155

PATIENT
  Age: 95 Year
  Sex: Female
  Weight: 83.99 kg

DRUGS (1)
  1. WOMENS ROGAINE UNSCENTED [Suspect]
     Active Substance: MINOXIDIL
     Indication: ALOPECIA
     Dosage: 1PUMP ONCE A DAY
     Route: 061
     Dates: start: 20191116, end: 20191118

REACTIONS (4)
  - Application site irritation [Recovered/Resolved]
  - Incorrect dose administered [Unknown]
  - Application site pruritus [Recovered/Resolved]
  - Rash erythematous [Not Recovered/Not Resolved]

NARRATIVE: CASE EVENT DATE: 20191116
